FAERS Safety Report 18589948 (Version 1)
Quarter: 2020Q4

REPORT INFORMATION
  Report Type: Spontaneous
  Country: US (occurrence: US)
  Receive Date: 20201207
  Receipt Date: 20201207
  Transmission Date: 20210114
  Serious: Yes (Hospitalization)
  Sender: FDA-Public Use
  Company Number: None

PATIENT
  Age: 37 Year
  Sex: Female

DRUGS (1)
  1. ICATIBANT [Suspect]
     Active Substance: ICATIBANT ACETATE
     Indication: AUTONOMIC NEUROPATHY
     Dosage: ?          OTHER FREQUENCY:ONSET OF HAE ATACK;?
     Route: 058
     Dates: start: 20201111

REACTIONS (5)
  - Fatigue [None]
  - Headache [None]
  - Vomiting [None]
  - Injection site pain [None]
  - Gastric disorder [None]

NARRATIVE: CASE EVENT DATE: 20201204
